FAERS Safety Report 7391450-2 (Version None)
Quarter: 2011Q2

REPORT INFORMATION
  Report Type: 
  Country: None (occurrence: None)
  Receive Date: 20110404
  Receipt Date: 20110214
  Transmission Date: 20111010
  Serious: Yes (Other)
  Sender: FDA-Public Use
  Company Number: US-BAYER-201037544NA

PATIENT
  Sex: Female
  Weight: 64.399 kg

DRUGS (7)
  1. CETIRIZINE HCL [Concomitant]
     Indication: HYPERSENSITIVITY
     Dosage: UNK
     Route: 048
     Dates: start: 20070528
  2. PROVENTIL [Concomitant]
     Indication: ASTHMA
  3. YAZ [Suspect]
     Dosage: LISTED AS CURRENT MEDICATION ON HOSPITAL TRIAGE FORM
     Dates: start: 20090101
  4. OCELLA [Suspect]
     Indication: PRODUCT USED FOR UNKNOWN INDICATION
     Route: 048
     Dates: start: 20040925
  5. YAZ [Suspect]
     Indication: ORAL CONTRACEPTION
     Dosage: 1 DF, QD
     Route: 048
     Dates: start: 20040925
  6. YASMIN [Suspect]
     Indication: ORAL CONTRACEPTION
     Dosage: 1 DF, QD
     Route: 048
     Dates: start: 20040925
  7. PRILOSEC [Concomitant]
     Indication: GASTRIC DISORDER
     Dosage: UNK
     Route: 048
     Dates: start: 20070528

REACTIONS (3)
  - EMOTIONAL DISTRESS [None]
  - PAIN [None]
  - GALLBLADDER INJURY [None]
